FAERS Safety Report 8784603 (Version 1)
Quarter: 2012Q4

REPORT INFORMATION
  Report Type: Spontaneous
  Country: US (occurrence: None)
  Receive Date: 20120831
  Receipt Date: 20120831
  Transmission Date: 20130627
  Serious: Yes (Death, Hospitalization)
  Sender: FDA-Public Use
  Company Number: B0826448A

PATIENT
  Age: 50 Year
  Sex: Male

DRUGS (2)
  1. VANCOMYCIN [Suspect]
     Indication: SEBORRHOEIC DERMATITIS
  2. TICARCILLIN SODIUM+POTASSIUM CLAVULANTE (FORMULATION UNKNOWN (TICARCILLIN NA+K CLAVULAN) [Suspect]
     Indication: SEBORRHOEIC DERMATITIS

REACTIONS (4)
  - Toxic epidermal necrolysis [None]
  - Pain in extremity [None]
  - Oedema peripheral [None]
  - Septic shock [None]
